FAERS Safety Report 8328528-2 (Version None)
Quarter: 2012Q2

REPORT INFORMATION
  Report Type: 
  Country: None (occurrence: None)
  Receive Date: 20120430
  Receipt Date: 20120418
  Transmission Date: 20120825
  Serious: Yes (Other)
  Sender: FDA-Public Use
  Company Number: 1262253

PATIENT
  Age: 71 Year
  Sex: Male

DRUGS (4)
  1. PACLITAXEL [Suspect]
     Indication: LUNG NEOPLASM MALIGNANT
     Dosage: 191.8 MG MILLIGRAM(S), 21 DAY, INTRAVENOUS
     Route: 042
     Dates: start: 20120405, end: 20120405
  2. CLEMASTINE FUMARATE [Concomitant]
  3. DEXAMETHASONE SODIUM PHOSPHATE [Concomitant]
  4. ONDANSETRON HCL [Concomitant]

REACTIONS (1)
  - PRODUCTIVE COUGH [None]
